FAERS Safety Report 24877646 (Version 1)
Quarter: 2025Q1

REPORT INFORMATION
  Report Type: Spontaneous
  Country: ES (occurrence: ES)
  Receive Date: 20250123
  Receipt Date: 20250123
  Transmission Date: 20250409
  Serious: Yes (Hospitalization, Other)
  Sender: AUROBINDO
  Company Number: ES-AEMPS-1616034

PATIENT
  Age: 75 Year
  Sex: Male

DRUGS (5)
  1. LEVOFLOXACIN [Suspect]
     Active Substance: LEVOFLOXACIN
     Indication: Urinary tract infection
     Dosage: 500 MILLIGRAM, ONCE A DAY [500MG CADA 24H]
     Route: 048
     Dates: start: 20241015, end: 20241021
  2. ALLOPURINOL [Concomitant]
     Active Substance: ALLOPURINOL
     Indication: Hyperuricaemia
     Dosage: 300 MILLIGRAM, ONCE A DAY [300MG CADA 24H EN DESAYUNO]
     Route: 048
     Dates: start: 20080901, end: 20241216
  3. CIPROFLOXACIN HYDROCHLORIDE [Concomitant]
     Active Substance: CIPROFLOXACIN HYDROCHLORIDE
     Indication: Urinary tract infection
     Dosage: 500 MILLIGRAM, EVERY OTHER DAY [500 MG CADA 12H]
     Route: 048
     Dates: start: 20241108, end: 20241111
  4. INFLUENZA VIRUS VACCINE [Concomitant]
     Active Substance: INFLUENZA VIRUS VACCINE
     Indication: Antiviral prophylaxis
     Route: 030
     Dates: start: 20241106, end: 20241106
  5. ACETAMINOPHEN [Concomitant]
     Active Substance: ACETAMINOPHEN
     Indication: Abdominal pain upper
     Dosage: 650 MILLIGRAM, EVERY HOUR [650 MG CADA 8H]
     Route: 048
     Dates: start: 20240911, end: 20241117

REACTIONS (1)
  - Hepatitis cholestatic [Recovering/Resolving]

NARRATIVE: CASE EVENT DATE: 20241111
